FAERS Safety Report 15663778 (Version 1)
Quarter: 2018Q4

REPORT INFORMATION
  Report Type: Spontaneous
  Country: US (occurrence: US)
  Receive Date: 20181128
  Receipt Date: 20181128
  Transmission Date: 20190205
  Serious: Yes (Life-Threatening, Hospitalization)
  Sender: FDA-Public Use
  Company Number: US-TEVA-2018-US-980538

PATIENT
  Age: 20 Year
  Sex: Female

DRUGS (1)
  1. DIPHENHYDRAMINE. [Suspect]
     Active Substance: DIPHENHYDRAMINE
     Indication: SUICIDE ATTEMPT
     Dosage: INGESTED 200 TABLETS
     Route: 048

REACTIONS (16)
  - Delirium [Unknown]
  - Intentional overdose [Unknown]
  - Maternal exposure during pregnancy [Unknown]
  - Drug screen positive [Unknown]
  - Nausea [Unknown]
  - Seizure [Unknown]
  - Electrocardiogram QRS complex prolonged [Unknown]
  - Confusional state [Unknown]
  - Foetal death [Not Recovered/Not Resolved]
  - Hypoxia [Unknown]
  - Coma [Unknown]
  - Tachycardia [Unknown]
  - Paraesthesia [Unknown]
  - Vomiting [Unknown]
  - Ventricular arrhythmia [Unknown]
  - Suicide attempt [Unknown]
